FAERS Safety Report 5875455-6 (Version None)
Quarter: 2008Q3

REPORT INFORMATION
  Report Type: 
  Country: None (occurrence: None)
  Receive Date: 20080904
  Receipt Date: 20080819
  Transmission Date: 20090109
  Serious: Yes (Hospitalization)
  Sender: FDA-Public Use
  Company Number: 8036523

PATIENT
  Age: 84 Year
  Sex: Female

DRUGS (8)
  1. KEPPRA [Suspect]
     Indication: EPILEPSY
     Dosage: 250 MG 2/D PO
     Route: 048
     Dates: start: 20080715
  2. TORAMID [Concomitant]
  3. COZAAR [Concomitant]
  4. DAFALGAN /00020001/ [Concomitant]
  5. PANTOZOL /01263202/ [Concomitant]
  6. NOVALGIN /0039501/ [Concomitant]
  7. PREDNISON AMINO [Concomitant]
  8. ASPIRIN [Concomitant]

REACTIONS (2)
  - CONFUSIONAL STATE [None]
  - RESTLESSNESS [None]
